FAERS Safety Report 4814153-4 (Version None)
Quarter: 2005Q4

REPORT INFORMATION
  Report Type: 
  Country: None (occurrence: None)
  Receive Date: 20051028
  Receipt Date: 20050711
  Transmission Date: 20060501
  Serious: Yes (Hospitalization)
  Sender: FDA-Public Use
  Company Number: US-GLAXOSMITHKLINE-A0565744A

PATIENT
  Age: 79 Year
  Sex: Female

DRUGS (4)
  1. ADVAIR DISKUS 100/50 [Suspect]
     Indication: BRONCHIECTASIS
     Dosage: 1PUFF TWICE PER DAY
     Route: 055
  2. ADANCOR [Concomitant]
  3. MUCINEX [Concomitant]
  4. ZICAM [Concomitant]

REACTIONS (2)
  - BLOOD PRESSURE DECREASED [None]
  - PELVIC FRACTURE [None]
